FAERS Safety Report 13962173 (Version 3)
Quarter: 2017Q4

REPORT INFORMATION
  Report Type: Spontaneous
  Country: US (occurrence: US)
  Receive Date: 20170912
  Receipt Date: 20171115
  Transmission Date: 20180320
  Serious: No
  Sender: FDA-Public Use
  Company Number: US-009507513-1709USA002154

PATIENT
  Sex: Female

DRUGS (10)
  1. HUMALOG [Concomitant]
     Active Substance: INSULIN LISPRO
  2. PREDNISONE. [Concomitant]
     Active Substance: PREDNISONE
     Route: 048
  3. FOLIC ACID. [Concomitant]
     Active Substance: FOLIC ACID
  4. ZEPATIER [Suspect]
     Active Substance: ELBASVIR\GRAZOPREVIR
     Indication: HEPATITIS C
     Dosage: ONE TABLET, ONCE PER DAY
     Route: 048
     Dates: start: 20170822
  5. JANUVIA [Concomitant]
     Active Substance: SITAGLIPTIN PHOSPHATE
     Route: 048
  6. ETODOLAC. [Concomitant]
     Active Substance: ETODOLAC
  7. METFORMIN [Concomitant]
     Active Substance: METFORMIN HYDROCHLORIDE
     Dosage: 1000 MG DAILY
  8. LANTUS [Concomitant]
     Active Substance: INSULIN GLARGINE
  9. CALCIUM ACETATE. [Concomitant]
     Active Substance: CALCIUM ACETATE
  10. VITAMINS (UNSPECIFIED) [Concomitant]
     Active Substance: VITAMINS

REACTIONS (7)
  - Blood glucose decreased [Unknown]
  - Pain [Recovering/Resolving]
  - Urine output decreased [Not Recovered/Not Resolved]
  - Malaise [Unknown]
  - Depression [Not Recovered/Not Resolved]
  - Diarrhoea [Recovering/Resolving]
  - Micturition frequency decreased [Not Recovered/Not Resolved]

NARRATIVE: CASE EVENT DATE: 2017
